FAERS Safety Report 8305432-7 (Version None)
Quarter: 2012Q2

REPORT INFORMATION
  Report Type: 
  Country: None (occurrence: None)
  Receive Date: 20120423
  Receipt Date: 20120417
  Transmission Date: 20120825
  Serious: Yes (Hospitalization)
  Sender: FDA-Public Use
  Company Number: PHHY2012GB032378

PATIENT
  Age: 71 Year
  Sex: Female
  Weight: 84.5 kg

DRUGS (6)
  1. BUMETANIDE [Suspect]
     Indication: PROPHYLAXIS
  2. ATENOLOL AND CHLORTHALIDONE [Concomitant]
     Indication: ACUTE CORONARY SYNDROME
     Dosage: 1 DF, QD
     Route: 048
     Dates: start: 20110824, end: 20110824
  3. ATENOLOL AND CHLORTHALIDONE [Concomitant]
     Dosage: 1 DF, QD
     Route: 048
     Dates: start: 20110824, end: 20110827
  4. SPIRONOLACTONE [Suspect]
     Indication: PROPHYLAXIS
  5. RAMIPRIL [Suspect]
     Indication: PROPHYLAXIS
  6. ASPIRIN [Concomitant]
     Indication: ACUTE CORONARY SYNDROME
     Dosage: 1 DF, QD
     Route: 048

REACTIONS (4)
  - DYSPNOEA [None]
  - LETHARGY [None]
  - STRESS CARDIOMYOPATHY [None]
  - RENAL FAILURE ACUTE [None]
